FAERS Safety Report 8923894 (Version 2)
Quarter: 2013Q1

REPORT INFORMATION
  Report Type: Spontaneous
  Country: US (occurrence: None)
  Receive Date: 20121116
  Receipt Date: 20130131
  Transmission Date: 20140127
  Serious: No
  Sender: FDA-Public Use
  Company Number: SP06196

PATIENT
  Age: 45 Year
  Sex: Male
  Weight: 79.38 kg

DRUGS (1)
  1. XIFAXAN [Suspect]
     Dosage: (550 MG, 2 IN 1 D)
     Route: 048
     Dates: start: 201003, end: 201207

REACTIONS (1)
  - Ammonia increased [None]
